FAERS Safety Report 7192156 (Version 2)
Quarter: 2012Q4

REPORT INFORMATION
  Report Type: 
  Country: CA (occurrence: CA)
  Receive Date: 20091129
  Receipt Date: 20121106
  Transmission Date: 20130627
  Serious: Yes (Hospitalization, Other)
  Sender: FDA-Public Use
  Company Number: PHHY2009CA19168

PATIENT
  Age: 40 Year
  Sex: Female

DRUGS (1)
  1. ZOMETA [Suspect]
     Indication: COLORECTAL CANCER
     Dosage: 4 mg, TIW
     Route: 042
     Dates: start: 20090113, end: 20091023

REACTIONS (11)
  - Intestinal obstruction [Unknown]
  - Neoplasm progression [Unknown]
  - Malignant neoplasm progression [Unknown]
  - White blood cell count decreased [Unknown]
  - Lymphocyte count decreased [Unknown]
  - Red blood cell count decreased [Unknown]
  - Haemoglobin decreased [Unknown]
  - Haematocrit decreased [Unknown]
  - Platelet count decreased [Unknown]
  - Blood calcium decreased [Unknown]
  - Pyrexia [Recovered/Resolved]
